FAERS Safety Report 7529391-X (Version None)
Quarter: 2011Q2

REPORT INFORMATION
  Report Type: 
  Country: None (occurrence: None)
  Receive Date: 20110520
  Receipt Date: 20110207
  Transmission Date: 20111010
  Serious: No
  Sender: FDA-Public Use
  Company Number: 027081

PATIENT
  Sex: Male

DRUGS (4)
  1. LACOSAMIDE [Suspect]
     Indication: COMPLEX PARTIAL SEIZURES
     Dosage: (ORAL)
     Route: 048
     Dates: start: 20080101
  2. LACOSAMIDE [Suspect]
     Indication: SIMPLE PARTIAL SEIZURES
     Dosage: (ORAL)
     Route: 048
     Dates: start: 20080101
  3. ZONISAMIDE [Concomitant]
  4. LEVETIRACETAM [Concomitant]

REACTIONS (1)
  - DIZZINESS [None]
